FAERS Safety Report 4477248-3 (Version None)
Quarter: 2004Q4

REPORT INFORMATION
  Report Type: 
  Country: None (occurrence: None)
  Receive Date: 20041018
  Receipt Date: 20040824
  Transmission Date: 20050328
  Serious: Yes (Hospitalization)
  Sender: FDA-Public Use
  Company Number: US-BRISTOL-MYERS SQUIBB COMPANY-12682092

PATIENT
  Age: 60 Year
  Sex: Male

DRUGS (7)
  1. ABILIFY [Suspect]
     Indication: MAJOR DEPRESSION
     Route: 048
     Dates: start: 20030702, end: 20040701
  2. COGENTIN [Suspect]
  3. SERZONE [Suspect]
  4. CLONAZEPAM [Suspect]
  5. SINGULAIR [Concomitant]
     Dates: start: 20040501
  6. LEVITRA [Concomitant]
     Dosage: TAKEN PRIOR TO SEX
     Dates: start: 20040501
  7. CLARITIN-D [Concomitant]
     Dates: start: 20040501

REACTIONS (2)
  - INFECTION [None]
  - INTESTINAL OBSTRUCTION [None]
